FAERS Safety Report 7016676-9 (Version None)
Quarter: 2010Q3

REPORT INFORMATION
  Report Type: 
  Country: None (occurrence: None)
  Receive Date: 20100923
  Receipt Date: 20100913
  Transmission Date: 20110219
  Serious: Yes (Other)
  Sender: FDA-Public Use
  Company Number: 2010SP048740

PATIENT
  Age: 40 Year
  Sex: Female
  Weight: 71 kg

DRUGS (3)
  1. DESOGESTREL/ETHINYL ESTRADIOL [Suspect]
     Indication: CONTRACEPTION
     Dosage: UNK; PO
     Route: 048
     Dates: start: 20050301
  2. CABERGOLINE [Suspect]
     Indication: HYPERPROLACTINAEMIA
     Dosage: 0.5 MG QW PO
     Route: 048
     Dates: start: 20100701
  3. AMOXICILLIN [Suspect]
     Indication: GINGIVAL INFECTION
     Dosage: 500 MG BID PO
     Route: 048
     Dates: start: 20100910, end: 20100913

REACTIONS (4)
  - DRUG INTERACTION [None]
  - GINGIVAL INFECTION [None]
  - HYPERPROLACTINAEMIA [None]
  - PITUITARY TUMOUR BENIGN [None]
